FAERS Safety Report 10564918 (Version 2)
Quarter: 2014Q4

REPORT INFORMATION
  Report Type: Spontaneous
  Country: PT (occurrence: PT)
  Receive Date: 20141105
  Receipt Date: 20141121
  Transmission Date: 20150529
  Serious: Yes (Hospitalization, Other)
  Sender: FDA-Public Use
  Company Number: PT-BRISTOL-MYERS SQUIBB COMPANY-21534367

PATIENT
  Age: 8 Decade
  Sex: Male

DRUGS (4)
  1. ZYLORIC [Suspect]
     Active Substance: ALLOPURINOL
  2. ELIQUIS [Suspect]
     Active Substance: APIXABAN
     Indication: CEREBROVASCULAR ACCIDENT PROPHYLAXIS
  3. COLCHICINE. [Suspect]
     Active Substance: COLCHICINE
  4. SIMVASTATIN. [Suspect]
     Active Substance: SIMVASTATIN

REACTIONS (3)
  - Renal impairment [Unknown]
  - Pancytopenia [Unknown]
  - Rhabdomyolysis [Recovering/Resolving]

NARRATIVE: CASE EVENT DATE: 20141019
